FAERS Safety Report 7688710-4 (Version None)
Quarter: 2011Q3

REPORT INFORMATION
  Report Type: 
  Country: None (occurrence: None)
  Receive Date: 20110817
  Receipt Date: 20110816
  Transmission Date: 20111222
  Serious: No
  Sender: FDA-Public Use
  Company Number: FR-GLAXOSMITHKLINE-B0728972A

PATIENT
  Age: 52 Year
  Sex: Female
  Weight: 58 kg

DRUGS (4)
  1. LAMICTAL [Suspect]
     Indication: BIPOLAR DISORDER
     Route: 048
     Dates: start: 20040101
  2. ZYPREXA [Concomitant]
     Indication: BIPOLAR DISORDER
     Dosage: 10MG PER DAY
     Route: 048
     Dates: start: 20080701
  3. ANDROCUR [Concomitant]
  4. ESTREVA GEL [Concomitant]

REACTIONS (3)
  - FATIGUE [None]
  - IRRITABILITY [None]
  - ANTICONVULSANT DRUG LEVEL ABOVE THERAPEUTIC [None]
